FAERS Safety Report 6104922-5 (Version None)
Quarter: 2009Q1

REPORT INFORMATION
  Report Type: 
  Country: None (occurrence: None)
  Receive Date: 20090306
  Receipt Date: 20090220
  Transmission Date: 20090719
  Serious: Yes (Hospitalization, Other)
  Sender: FDA-Public Use
  Company Number: PHHY2008MX04192

PATIENT
  Age: 67 Year
  Sex: Female

DRUGS (1)
  1. DIOVAN HCT [Suspect]
     Indication: HYPERTENSION
     Dosage: 160/ 12.5 MG DAILY
     Route: 048
     Dates: start: 20070901

REACTIONS (2)
  - PNEUMONIA [None]
  - RENAL DISORDER [None]
